FAERS Safety Report 4851130-1 (Version None)
Quarter: 2005Q4

REPORT INFORMATION
  Report Type: 
  Country: None (occurrence: None)
  Receive Date: 20051208
  Receipt Date: 20051130
  Transmission Date: 20060501
  Serious: Yes (Hospitalization)
  Sender: FDA-Public Use
  Company Number: 2005-04684

PATIENT
  Age: 53 Year
  Sex: Female

DRUGS (3)
  1. NORCO [Suspect]
     Indication: MIGRAINE
     Dosage: 20 TABLET, 5X/DAY, ORAL
     Route: 048
     Dates: start: 20040101, end: 20051030
  2. XANAX [Concomitant]
  3. SUBOXONE TABLET [Concomitant]

REACTIONS (7)
  - ALANINE AMINOTRANSFERASE INCREASED [None]
  - ASPARTATE AMINOTRANSFERASE INCREASED [None]
  - BLOOD TRIGLYCERIDES INCREASED [None]
  - CHEST PAIN [None]
  - GAMMA-GLUTAMYLTRANSFERASE INCREASED [None]
  - HEPATIC ENZYME INCREASED [None]
  - HEPATIC NECROSIS [None]
